FAERS Safety Report 5906783-3 (Version None)
Quarter: 2008Q3

REPORT INFORMATION
  Report Type: 
  Country: None (occurrence: None)
  Receive Date: 20080930
  Receipt Date: 20080923
  Transmission Date: 20090109
  Serious: Yes (Other)
  Sender: FDA-Public Use
  Company Number: 2008S1000256

PATIENT
  Age: 50 Year
  Sex: Female

DRUGS (1)
  1. SORIATANE CK [Suspect]
     Indication: PSORIASIS
     Dosage: 25 MG; PO
     Route: 048
     Dates: start: 20080601

REACTIONS (2)
  - DYSPHONIA [None]
  - THYROID CANCER [None]
